FAERS Safety Report 12234763 (Version 1)
Quarter: 2016Q2

REPORT INFORMATION
  Report Type: Spontaneous
  Country: US (occurrence: None)
  Receive Date: 20160401
  Receipt Date: 20160401
  Transmission Date: 20160815
  Serious: No
  Sender: FDA-Public Use
  Company Number: None

PATIENT
  Age: 14 Year
  Sex: Male
  Weight: 68.04 kg

DRUGS (4)
  1. ZONISAMIDE 400 MG [Suspect]
     Active Substance: ZONISAMIDE
     Indication: SEIZURE
     Dosage: AT NIGHT 400MG?
  2. LAMICTAL [Suspect]
     Active Substance: LAMOTRIGINE
     Indication: SEIZURE
     Dosage: 300MG + 50MG MORNING AND EVE. 7AM+PM
  3. VITAMIN D3 [Concomitant]
     Active Substance: CHOLECALCIFEROL
  4. METHYLPHENIDATE. [Concomitant]
     Active Substance: METHYLPHENIDATE

REACTIONS (10)
  - Headache [None]
  - Bradyphrenia [None]
  - Eye disorder [None]
  - Lip swelling [None]
  - Mouth swelling [None]
  - Off label use [None]
  - Fatigue [None]
  - Somnolence [None]
  - Swollen tongue [None]
  - Speech disorder [None]

NARRATIVE: CASE EVENT DATE: 20160117
